FAERS Safety Report 4589750-4 (Version None)
Quarter: 2005Q1

REPORT INFORMATION
  Report Type: 
  Country: None (occurrence: None)
  Receive Date: 20050217
  Receipt Date: 20050203
  Transmission Date: 20050727
  Serious: Yes (Hospitalization)
  Sender: FDA-Public Use
  Company Number: USA-2004-0016476

PATIENT
  Age: 54 Year
  Sex: Female

DRUGS (5)
  1. CEFDITOREN PIVOXIL (SIMILAR TO NDA 21-222) (CEFDITOREN PIVOXIL) OTHER [Suspect]
     Indication: LYMPHADENOPATHY
     Dosage: 100 MG, TID, ORAL
     Route: 048
     Dates: start: 20040612, end: 20040617
  2. DASEN (SERRAPEPTASE) [Concomitant]
  3. GOODMIN (BROTIZOLAM) [Concomitant]
  4. LOXONIN (LOXOPROFEN SODIUM) [Concomitant]
  5. STRONG NEO-MINOPHAGEN C (AMINOACETIC ACID, CYSTEINE, GLYCYRRHIZIC ACID [Concomitant]

REACTIONS (16)
  - ALANINE AMINOTRANSFERASE INCREASED [None]
  - ASPARTATE AMINOTRANSFERASE INCREASED [None]
  - BLOOD ALKALINE PHOSPHATASE INCREASED [None]
  - BLOOD LACTATE DEHYDROGENASE INCREASED [None]
  - CHOLESTASIS [None]
  - EOSINOPHILIA [None]
  - GAMMA-GLUTAMYLTRANSFERASE INCREASED [None]
  - GENERALISED ERYTHEMA [None]
  - HEPATIC FUNCTION ABNORMAL [None]
  - HEPATIC MASS [None]
  - INSOMNIA [None]
  - JAUNDICE [None]
  - KERATITIS [None]
  - LIVER DISORDER [None]
  - PRURITUS GENERALISED [None]
  - VIRAL INFECTION [None]
